FAERS Safety Report 4497641-2 (Version None)
Quarter: 2004Q4

REPORT INFORMATION
  Report Type: 
  Country: None (occurrence: None)
  Receive Date: 20041105
  Receipt Date: 20041029
  Transmission Date: 20050328
  Serious: Yes (Hospitalization)
  Sender: FDA-Public Use
  Company Number: TPA2004A01041

PATIENT
  Age: 62 Year
  Sex: Male
  Weight: 104.3273 kg

DRUGS (8)
  1. ACTOS [Suspect]
     Indication: DIABETES MELLITUS NON-INSULIN-DEPENDENT
     Dosage: 45 MG, 1 IN 1 D, PER ORAL
     Route: 048
     Dates: start: 19990101, end: 20040816
  2. QUININE SULFATE [Suspect]
     Indication: MUSCLE CRAMP
     Dosage: LEG CRAMPS
     Dates: end: 20040101
  3. GLYBURIDE [Suspect]
     Indication: DIABETES MELLITUS
     Dosage: 10 MG, 2 IN 1 D, PER ORAL
     Route: 048
     Dates: start: 19940101, end: 20040801
  4. VOLTAREN [Concomitant]
  5. ACETAMINOPHEN [Concomitant]
  6. BENAZEPRINE [Concomitant]
  7. NORVASC [Concomitant]
  8. MOBISYL [Concomitant]

REACTIONS (1)
  - PHOTOSENSITIVITY REACTION [None]
